FAERS Safety Report 11131430 (Version 1)
Quarter: 2015Q2

REPORT INFORMATION
  Report Type: Spontaneous
  Country: NL (occurrence: None)
  Receive Date: 20150520
  Receipt Date: 20150520
  Transmission Date: 20150821
  Serious: Yes (Other)
  Sender: FDA-Public Use
  Company Number: ADR-2015-00980

PATIENT
  Age: 29 Year
  Sex: Male

DRUGS (4)
  1. COCAINE [Suspect]
     Active Substance: COCAINE
  2. BACLOFEN. [Suspect]
     Active Substance: BACLOFEN
     Indication: DRUG DEPENDENCE
  3. GAMMA-HYDROXYBUTYRATE [Suspect]
     Active Substance: 4-HYDROXYBUTANOIC ACID
  4. PAROXETINE [Suspect]
     Active Substance: PAROXETINE\PAROXETINE HYDROCHLORIDE

REACTIONS (5)
  - Fatigue [None]
  - Headache [None]
  - Off label use [None]
  - Hyperhidrosis [None]
  - Euphoric mood [None]

NARRATIVE: CASE EVENT DATE: 20150223
